FAERS Safety Report 15736725 (Version 1)
Quarter: 2018Q4

REPORT INFORMATION
  Report Type: Spontaneous
  Country: US (occurrence: US)
  Receive Date: 20181204
  Receipt Date: 20181204
  Transmission Date: 20190205
  Serious: Yes (Hospitalization)
  Sender: FDA-Public Use
  Company Number: None

PATIENT
  Sex: Male

DRUGS (1)
  1. HALDOL [Suspect]
     Active Substance: HALOPERIDOL
     Indication: MENTAL DISORDER

REACTIONS (5)
  - Decreased appetite [None]
  - Musculoskeletal stiffness [None]
  - Feeling abnormal [None]
  - Myalgia [None]
  - Insomnia [None]

NARRATIVE: CASE EVENT DATE: 20181203
